FAERS Safety Report 17430087 (Version 2)
Quarter: 2020Q1

REPORT INFORMATION
  Report Type: Spontaneous
  Country: US (occurrence: US)
  Receive Date: 20200218
  Receipt Date: 20200318
  Transmission Date: 20200409
  Serious: No
  Sender: FDA-Public Use
  Company Number: US-PFIZER INC-2020069793

PATIENT
  Age: 71 Year
  Sex: Male
  Weight: 79.38 kg

DRUGS (1)
  1. DEPO-TESTOSTERONE [Suspect]
     Active Substance: TESTOSTERONE CYPIONATE
     Indication: BLOOD TESTOSTERONE DECREASED
     Dosage: 1 ML, WEEKLY
     Route: 030
     Dates: start: 20200125

REACTIONS (3)
  - Poor quality product administered [Unknown]
  - Feeling hot [Not Recovered/Not Resolved]
  - Product deposit [Not Recovered/Not Resolved]

NARRATIVE: CASE EVENT DATE: 20200208
